FAERS Safety Report 10152149 (Version 1)
Quarter: 2014Q2

REPORT INFORMATION
  Report Type: Report from Study
  Country: CN (occurrence: CN)
  Receive Date: 20140505
  Receipt Date: 20140505
  Transmission Date: 20141212
  Serious: Yes (Hospitalization, Other)
  Sender: FDA-Public Use
  Company Number: CN-ROCHE-1389505

PATIENT
  Age: 50 Year
  Sex: Female

DRUGS (5)
  1. HERCEPTIN [Suspect]
     Indication: BREAST CANCER
     Dosage: DOSE: 440 MG
     Route: 042
     Dates: start: 20130326, end: 201306
  2. HERCEPTIN [Suspect]
     Dosage: FORM STRENGTH: 440MG/20ML AT 400MG EVERY 3 WEEKS.
     Route: 041
     Dates: start: 20130701
  3. XELODA [Suspect]
     Indication: BREAST CANCER METASTATIC
     Route: 065
     Dates: start: 20130920, end: 201401
  4. DOCETAXEL [Concomitant]
     Dosage: DOSE: 160 MG
     Route: 065
     Dates: start: 20130326, end: 201306
  5. GEMCITABINE [Concomitant]
     Indication: BREAST CANCER METASTATIC
     Dosage: 1.6 (UNIT NOT PROVIDED)
     Route: 065
     Dates: start: 20130920, end: 201401

REACTIONS (4)
  - Breast cancer metastatic [Recovering/Resolving]
  - Tumour embolism [Unknown]
  - White blood cell count decreased [Recovering/Resolving]
  - Neutrophil count decreased [Recovering/Resolving]
